FAERS Safety Report 10616547 (Version 1)
Quarter: 2014Q4

REPORT INFORMATION
  Report Type: Spontaneous
  Country: US (occurrence: None)
  Receive Date: 20141126
  Receipt Date: 20141126
  Transmission Date: 20150529
  Serious: Yes (Other)
  Sender: FDA-Public Use
  Company Number: None

PATIENT
  Age: 48 Year

DRUGS (1)
  1. FENTANYL. [Suspect]
     Active Substance: FENTANYL
     Dosage: 75 UG/1 HR

REACTIONS (2)
  - Product adhesion issue [None]
  - Inadequate analgesia [None]

NARRATIVE: CASE EVENT DATE: 201201
